FAERS Safety Report 5665229-3 (Version None)
Quarter: 2008Q1

REPORT INFORMATION
  Report Type: 
  Country: None (occurrence: None)
  Receive Date: 20080314
  Receipt Date: 20080201
  Transmission Date: 20080703
  Serious: No
  Sender: FDA-Public Use
  Company Number: US-ABBOTT-07P-163-0375850-00

PATIENT
  Sex: Female
  Weight: 118 kg

DRUGS (6)
  1. HUMIRA [Suspect]
     Indication: PSORIATIC ARTHROPATHY
     Route: 058
     Dates: start: 20070707
  2. HUMIRA [Suspect]
     Route: 058
     Dates: end: 20070601
  3. HUMIRA [Suspect]
     Dosage: PRE-FILLED SYRINGE
     Dates: start: 20070401, end: 20070601
  4. VICODIN [Concomitant]
     Indication: PAIN
     Dosage: 0-4 PILLS
     Route: 048
  5. PAIN PATCHES [Concomitant]
     Indication: PAIN
  6. IBUPROFEN [Concomitant]
     Indication: PAIN
     Route: 048
     Dates: end: 20070424

REACTIONS (8)
  - AMENORRHOEA [None]
  - BACK PAIN [None]
  - BLOOD CREATININE INCREASED [None]
  - HAEMORRHAGE [None]
  - LIVER FUNCTION TEST ABNORMAL [None]
  - MENORRHAGIA [None]
  - PSORIASIS [None]
  - RASH [None]
